FAERS Safety Report 21351492 (Version 1)
Quarter: 2022Q3

REPORT INFORMATION
  Report Type: Spontaneous
  Country: FR (occurrence: FR)
  Receive Date: 20220919
  Receipt Date: 20220919
  Transmission Date: 20221026
  Serious: Yes (Hospitalization, Other)
  Sender: FDA-Public Use
  Company Number: None

PATIENT
  Sex: Male
  Weight: 2.528 kg

DRUGS (5)
  1. VENLAFAXINE HYDROCHLORIDE [Suspect]
     Active Substance: VENLAFAXINE HYDROCHLORIDE
     Indication: Depression
     Dosage: 75 MG, 1X/DAY
     Route: 064
     Dates: end: 20220820
  2. ZOLOFT [Suspect]
     Active Substance: SERTRALINE HYDROCHLORIDE
     Indication: Depression
     Dosage: 50 MG, 1X/DAY
     Route: 064
     Dates: start: 20220301, end: 20220820
  3. OXAZEPAM [Suspect]
     Active Substance: OXAZEPAM
     Indication: Depression
     Dosage: 100 MG, 1X/DAY
     Route: 064
     Dates: start: 20220301, end: 20220820
  4. CHLORPROMAZINE HYDROCHLORIDE [Suspect]
     Active Substance: CHLORPROMAZINE HYDROCHLORIDE
     Indication: Depression
     Dosage: 1/2 TABLET AT BED TIME + 1/2 TABLET IF ANXIETY
     Route: 064
     Dates: start: 20220715, end: 20220820
  5. DOXYLAMINE SUCCINATE [Suspect]
     Active Substance: DOXYLAMINE SUCCINATE
     Indication: Depression
     Dosage: 7.5 MG, 1X/DAY
     Route: 064
     Dates: end: 20220820

REACTIONS (2)
  - Maternal exposure during pregnancy [Recovered/Resolved]
  - Hypotonia neonatal [Recovered/Resolved]

NARRATIVE: CASE EVENT DATE: 20220820
